FAERS Safety Report 25332468 (Version 1)
Quarter: 2025Q2

REPORT INFORMATION
  Report Type: Report from Study
  Country: CA (occurrence: CA)
  Receive Date: 20250519
  Receipt Date: 20250519
  Transmission Date: 20250717
  Serious: Yes (Death, Other)
  Sender: SANDOZ
  Company Number: CA-SANDOZ-SDZ2025CA025520

PATIENT
  Sex: Female

DRUGS (4)
  1. WYOST [Suspect]
     Active Substance: DENOSUMAB-BBDZ
     Indication: Metastases to bone
     Dosage: UNK, Q4W, MONTHLY
     Route: 058
  2. WYOST [Suspect]
     Active Substance: DENOSUMAB-BBDZ
     Indication: Breast cancer
  3. WYOST [Suspect]
     Active Substance: DENOSUMAB-BBDZ
     Indication: Musculoskeletal disorder
  4. CALCIUM [Concomitant]
     Active Substance: CALCIUM
     Indication: Product used for unknown indication
     Route: 065

REACTIONS (2)
  - Death [Fatal]
  - Product knowledge deficit [Unknown]

NARRATIVE: CASE EVENT DATE: 20250101
